FAERS Safety Report 15429458 (Version 3)
Quarter: 2019Q2

REPORT INFORMATION
  Report Type: Spontaneous
  Country: FI (occurrence: FI)
  Receive Date: 20180926
  Receipt Date: 20190404
  Transmission Date: 20190711
  Serious: Yes (Death, Hospitalization, Other)
  Sender: FDA-Public Use
  Company Number: FI-BAYER-2018-155718

PATIENT
  Sex: Male

DRUGS (11)
  1. CIPRALEX [Concomitant]
     Active Substance: ESCITALOPRAM OXALATE
  2. PEGORION [Concomitant]
     Active Substance: POLYETHYLENE GLYCOL 4000
  3. PRIMPERAN [Concomitant]
     Active Substance: METOCLOPRAMIDE HYDROCHLORIDE
  4. CARDACE [RAMIPRIL] [Concomitant]
  5. DUROGESIC [Concomitant]
     Active Substance: FENTANYL
  6. XOFIGO [Suspect]
     Active Substance: RADIUM RA-223 DICHLORIDE
     Indication: PROSTATE CANCER
     Dosage: UNK
     Dates: start: 20180202
  7. ELIGARD [Concomitant]
     Active Substance: LEUPROLIDE ACETATE
  8. XOFIGO [Suspect]
     Active Substance: RADIUM RA-223 DICHLORIDE
     Indication: METASTASES TO BONE
  9. PARACETAMOL [Concomitant]
     Active Substance: ACETAMINOPHEN
  10. KALCIPOS-D [Concomitant]
     Active Substance: CALCIUM CARBONATE\CHOLECALCIFEROL
  11. TEMESTA [ASTEMIZOLE] [Concomitant]

REACTIONS (3)
  - Prostate cancer stage IV [Fatal]
  - Prostatic specific antigen increased [None]
  - Diarrhoea [Recovered/Resolved]

NARRATIVE: CASE EVENT DATE: 20180206
